FAERS Safety Report 7658132-0 (Version None)
Quarter: 2011Q3

REPORT INFORMATION
  Report Type: 
  Country: None (occurrence: None)
  Receive Date: 20110805
  Receipt Date: 20110801
  Transmission Date: 20111222
  Serious: Yes (Life-Threatening, Hospitalization, Other)
  Sender: FDA-Public Use
  Company Number: AU-JNJFOC-20110707024

PATIENT
  Sex: Male
  Weight: 96.8 kg

DRUGS (3)
  1. DURAGESIC-100 [Suspect]
     Indication: PAIN
     Route: 048
     Dates: start: 20110624, end: 20110719
  2. DURAGESIC-100 [Suspect]
     Indication: OSTEONECROSIS
     Route: 048
     Dates: start: 20110624, end: 20110719
  3. DURAGESIC-100 [Suspect]
     Indication: HIP FRACTURE
     Route: 048
     Dates: start: 20110624, end: 20110719

REACTIONS (4)
  - RESPIRATORY DEPRESSION [None]
  - INTENTIONAL DRUG MISUSE [None]
  - DRUG ABUSE [None]
  - CARDIAC ARREST [None]
